FAERS Safety Report 7092448-4 (Version None)
Quarter: 2010Q4

REPORT INFORMATION
  Report Type: 
  Country: None (occurrence: None)
  Receive Date: 20101108
  Receipt Date: 20101108
  Transmission Date: 20110411
  Serious: Yes (Death, Hospitalization, Other)
  Sender: FDA-Public Use
  Company Number: None

PATIENT
  Sex: Male

DRUGS (11)
  1. (SUNITINIB) 37.5MG [Suspect]
     Indication: CENTRAL NERVOUS SYSTEM LESION
     Dosage: 37.5MG 1 X DAY ORAL
     Route: 048
     Dates: start: 20100921, end: 20101018
  2. (SUNITINIB) 37.5MG [Suspect]
     Indication: NEOPLASM MALIGNANT
     Dosage: 37.5MG 1 X DAY ORAL
     Route: 048
     Dates: start: 20100921, end: 20101018
  3. INSULIN [Concomitant]
  4. KEPPRA [Concomitant]
  5. VICODIN [Concomitant]
  6. ADVAIR DISKUS 100/50 [Concomitant]
  7. SPIRIVA W/HANDIHALER [Concomitant]
  8. METOPROLOL SUCCINATE [Concomitant]
  9. LISINOPRIL [Concomitant]
  10. LANTUS [Concomitant]
  11. MAGNESIUM SALT [Concomitant]

REACTIONS (1)
  - PNEUMONIA [None]
